FAERS Safety Report 10581851 (Version 2)
Quarter: 2014Q4

REPORT INFORMATION
  Report Type: Spontaneous
  Country: US (occurrence: US)
  Receive Date: 20141113
  Receipt Date: 20141219
  Transmission Date: 20150529
  Serious: No
  Sender: FDA-Public Use
  Company Number: US-PFIZER INC-2014309892

PATIENT
  Age: 56 Year
  Sex: Female
  Weight: 58 kg

DRUGS (4)
  1. LEVOTHYROXINE [Concomitant]
     Active Substance: LEVOTHYROXINE
     Dosage: UNK
  2. ESTRING [Suspect]
     Active Substance: ESTRADIOL
     Indication: VAGINAL DISORDER
     Dosage: 2 MG, EVERY 3 MONTHS
     Route: 067
     Dates: start: 20140605, end: 20141105
  3. SYNTHROID [Concomitant]
     Active Substance: LEVOTHYROXINE SODIUM
     Indication: HYPOTHYROIDISM
     Dosage: 112 ?G, DAILY
     Route: 048
  4. MINIVELLE [Concomitant]
     Active Substance: ESTRADIOL
     Dosage: 0.05 MG, CHANGING PATCHES TWICE A WEEK
     Route: 062

REACTIONS (3)
  - Eczema [Unknown]
  - Hypersensitivity [Unknown]
  - Rash papulosquamous [Recovered/Resolved]

NARRATIVE: CASE EVENT DATE: 2014
